FAERS Safety Report 22663956 (Version 4)
Quarter: 2024Q1

REPORT INFORMATION
  Report Type: Other
  Country: GT (occurrence: GT)
  Receive Date: 20230703
  Receipt Date: 20240207
  Transmission Date: 20240410
  Serious: Yes (Death, Other)
  Sender: FDA-Public Use
  Company Number: GT-TOLMAR, INC.-23GT041421

PATIENT
  Age: 65 Year
  Sex: Male

DRUGS (6)
  1. ELIGARD [Suspect]
     Active Substance: LEUPROLIDE ACETATE
     Indication: Prostate cancer
     Dosage: 45 MILLIGRAM, Q 6 MONTH
     Route: 058
     Dates: start: 20230201
  2. ELIGARD [Suspect]
     Active Substance: LEUPROLIDE ACETATE
     Dosage: 45 MILLIGRAM, Q 6 MONTH
     Route: 058
     Dates: start: 202207
  3. ELIGARD [Suspect]
     Active Substance: LEUPROLIDE ACETATE
     Dosage: 45 MILLIGRAM, Q 6 MONTH
     Route: 058
     Dates: start: 20230809
  4. ELIGARD [Suspect]
     Active Substance: LEUPROLIDE ACETATE
     Indication: Prostate cancer
     Dosage: UNK
  5. CANDESARTAN [Concomitant]
     Active Substance: CANDESARTAN
     Indication: Hypertension
     Dosage: 1 DOSAGE FORM, MORNING
  6. PLENDIL [Concomitant]
     Active Substance: FELODIPINE
     Indication: Hypertension
     Dosage: 0.5 DOSAGE FORM, BID

REACTIONS (15)
  - Condition aggravated [Not Recovered/Not Resolved]
  - Loss of consciousness [Unknown]
  - Mobility decreased [Unknown]
  - Hypophagia [Unknown]
  - Gastrointestinal pain [Unknown]
  - Confusional state [Unknown]
  - Incoherent [Unknown]
  - Speech disorder [Unknown]
  - Abdominal pain upper [Unknown]
  - Pain in extremity [Not Recovered/Not Resolved]
  - Prostatic specific antigen increased [Unknown]
  - Prostate cancer [Fatal]
  - Peripheral swelling [Not Recovered/Not Resolved]
  - Palpitations [Unknown]
  - Drug ineffective [Unknown]

NARRATIVE: CASE EVENT DATE: 20230201
